FAERS Safety Report 11014896 (Version 2)
Quarter: 2015Q2

REPORT INFORMATION
  Report Type: Spontaneous
  Country: US (occurrence: US)
  Receive Date: 20150412
  Receipt Date: 20150525
  Transmission Date: 20150821
  Serious: No
  Sender: FDA-Public Use
  Company Number: US-JNJFOC-20130710361

PATIENT
  Sex: Female

DRUGS (4)
  1. BENADRYL [Concomitant]
     Active Substance: DIPHENHYDRAMINE HYDROCHLORIDE
     Indication: BONE PAIN
     Route: 048
  2. SEREVENT (SALMETEROL XINAFOATE) [Concomitant]
     Indication: EMPHYSEMA
     Route: 065
  3. TRAMADOL [Suspect]
     Active Substance: TRAMADOL
     Indication: BONE PAIN
     Dosage: AS NEEDED??1 TABLET 4 IN A DAY
     Route: 048
     Dates: start: 200911, end: 20110920
  4. MORPHINE SULFATE. [Concomitant]
     Active Substance: MORPHINE SULFATE
     Indication: PAIN
     Route: 065

REACTIONS (5)
  - Nightmare [Recovered/Resolved with Sequelae]
  - Drug ineffective [Recovered/Resolved with Sequelae]
  - Gastrointestinal disorder [Recovered/Resolved with Sequelae]
  - Wrong technique in drug usage process [Recovered/Resolved]
  - Headache [Recovered/Resolved with Sequelae]
